FAERS Safety Report 7396210-4 (Version None)
Quarter: 2011Q2

REPORT INFORMATION
  Report Type: 
  Country: None (occurrence: None)
  Receive Date: 20110406
  Receipt Date: 20110401
  Transmission Date: 20111010
  Serious: Yes (Death)
  Sender: FDA-Public Use
  Company Number: US-ASTELLAS-2011US001369

PATIENT

DRUGS (5)
  1. TACROLIMUS [Suspect]
     Indication: LIVER TRANSPLANT
     Dosage: 0.2 MG/KG, UID/QD
     Route: 065
  2. METHYLPREDNISOLONE [Suspect]
     Dosage: 125 MG, TOTAL DOSE
     Route: 042
  3. METHYLPREDNISOLONE [Suspect]
     Indication: LIVER TRANSPLANT
     Dosage: 500 MG, TOTAL DOSE
     Route: 042
  4. PREDNISONE [Suspect]
     Indication: LIVER TRANSPLANT
     Dosage: 20 MG, UID/QD
     Route: 065
  5. METHYLPREDNISOLONE [Suspect]
     Dosage: 250 MG, TOTAL DOSE
     Route: 042

REACTIONS (1)
  - SEPSIS [None]
